FAERS Safety Report 20820019 (Version 2)
Quarter: 2022Q2

REPORT INFORMATION
  Report Type: Spontaneous
  Country: KR (occurrence: KR)
  Receive Date: 20220512
  Receipt Date: 20220526
  Transmission Date: 20220721
  Serious: Yes (Life-Threatening, Hospitalization, Other)
  Sender: FDA-Public Use
  Company Number: KR-TEVA-2022-KR-2035001

PATIENT
  Age: 2 Month
  Sex: Female

DRUGS (4)
  1. ETOPOSIDE [Suspect]
     Active Substance: ETOPOSIDE
     Indication: Adrenocortical carcinoma
     Route: 065
  2. ETOMIDATE [Suspect]
     Active Substance: ETOMIDATE
     Indication: Cushing^s syndrome
     Dosage: LOADING DOSE
     Route: 050
  3. ETOMIDATE [Suspect]
     Active Substance: ETOMIDATE
     Dosage: MAINTENANCE DOSE
     Route: 050
  4. CISPLATIN [Suspect]
     Active Substance: CISPLATIN
     Indication: Adrenocortical carcinoma
     Route: 065

REACTIONS (5)
  - Adrenal insufficiency [Recovering/Resolving]
  - Pneumonia [Unknown]
  - Pancytopenia [Unknown]
  - Acute respiratory distress syndrome [Unknown]
  - Off label use [Unknown]
